FAERS Safety Report 10913809 (Version 1)
Quarter: 2015Q1

REPORT INFORMATION
  Report Type: Report from Study
  Country: US (occurrence: US)
  Receive Date: 20150313
  Receipt Date: 20150313
  Transmission Date: 20150721
  Serious: Yes (Other)
  Sender: FDA-Public Use
  Company Number: US-GILEAD-2015-0137710

PATIENT
  Age: 84 Year
  Sex: Male

DRUGS (2)
  1. RANOLAZINE [Suspect]
     Active Substance: RANOLAZINE
     Indication: ANGINA PECTORIS
     Dosage: 1000 MG, UNK
     Route: 048
  2. RANOLAZINE [Suspect]
     Active Substance: RANOLAZINE
     Indication: ATRIAL FIBRILLATION
     Dosage: 500 MG, UNK
     Route: 048

REACTIONS (3)
  - Walking aid user [Unknown]
  - Atrial fibrillation [Unknown]
  - Heart rate irregular [Unknown]
